FAERS Safety Report 5262011-6 (Version None)
Quarter: 2007Q1

REPORT INFORMATION
  Report Type: 
  Country: None (occurrence: None)
  Receive Date: 20061208
  Receipt Date: 20060801
  Transmission Date: 20070707
  Serious: Yes (Death)
  Sender: FDA-Public Use
  Company Number: USA-2006-0024829

PATIENT
  Age: 38 Year

DRUGS (4)
  1. OXYCONTIN [Suspect]
     Indication: PAIN
     Dosage: 40 MG, BID
     Dates: start: 20040120, end: 20040130
  2. LORTAB [Concomitant]
  3. NEURONTIN [Concomitant]
  4. PAMELOR [Concomitant]

REACTIONS (1)
  - OVERDOSE [None]
